FAERS Safety Report 20873147 (Version 1)
Quarter: 2022Q2

REPORT INFORMATION
  Report Type: Spontaneous
  Country: US (occurrence: US)
  Receive Date: 20220525
  Receipt Date: 20220525
  Transmission Date: 20220720
  Serious: Yes (Other)
  Sender: FDA-Public Use
  Company Number: US-PFIZER INC-202200738295

PATIENT
  Age: 6 Decade
  Sex: Male

DRUGS (1)
  1. DEXMEDETOMIDINE HYDROCHLORIDE [Suspect]
     Active Substance: DEXMEDETOMIDINE HYDROCHLORIDE
     Indication: Sedation
     Dosage: 40 UG/ML, OVER A 6 HOUR PERIOD, 212MCG

REACTIONS (3)
  - Bradycardia [Unknown]
  - Electrocardiogram PR prolongation [Unknown]
  - Atrioventricular block first degree [Unknown]
